FAERS Safety Report 23599859 (Version 2)
Quarter: 2025Q2

REPORT INFORMATION
  Report Type: Report from Study
  Country: IT (occurrence: IT)
  Receive Date: 20240306
  Receipt Date: 20250430
  Transmission Date: 20250717
  Serious: Yes (Other)
  Sender: AUROBINDO
  Company Number: IT-CELLTRION HEALTHCARE HUNGARY KFT-2024IT002794

PATIENT
  Age: 75 Year
  Sex: Male

DRUGS (5)
  1. BENDAMUSTINE [Suspect]
     Active Substance: BENDAMUSTINE
     Indication: Follicular lymphoma
     Route: 065
  2. RITUXIMAB [Suspect]
     Active Substance: RITUXIMAB
     Indication: Follicular lymphoma
     Route: 065
  3. ELASOMERAN [Concomitant]
     Active Substance: ELASOMERAN
     Indication: Immunisation
     Route: 065
  4. ELASOMERAN [Concomitant]
     Active Substance: ELASOMERAN
     Route: 065
     Dates: start: 202103
  5. ELASOMERAN [Concomitant]
     Active Substance: ELASOMERAN
     Route: 065
     Dates: start: 202112, end: 202201

REACTIONS (3)
  - Breakthrough COVID-19 [Unknown]
  - Humoral immune defect [Unknown]
  - Vaccination failure [Unknown]
